FAERS Safety Report 7568578-7 (Version None)
Quarter: 2011Q2

REPORT INFORMATION
  Report Type: 
  Country: None (occurrence: None)
  Receive Date: 20110617
  Receipt Date: 20110606
  Transmission Date: 20111010
  Serious: Yes (Other)
  Sender: FDA-Public Use
  Company Number: 2011MA007087

PATIENT
  Sex: Male

DRUGS (2)
  1. MIRTAZAPINE [Suspect]
     Indication: DEPRESSION
     Dosage: 30 MG; ; PO
     Route: 048
     Dates: start: 20110225, end: 20110325
  2. MIRTAZAPINE [Suspect]
     Dosage: 30 MG; ; PO
     Route: 048
     Dates: start: 20110225, end: 20110325

REACTIONS (1)
  - ANGER [None]
